FAERS Safety Report 11998241 (Version 1)
Quarter: 2016Q1

REPORT INFORMATION
  Report Type: Spontaneous
  Country: US (occurrence: None)
  Receive Date: 20160202
  Receipt Date: 20160202
  Transmission Date: 20160526
  Serious: Yes (Life-Threatening, Hospitalization, Other)
  Sender: FDA-Public Use
  Company Number: None

PATIENT
  Age: 71 Year
  Sex: Male
  Weight: 93.6 kg

DRUGS (2)
  1. RIVAROXABAN [Suspect]
     Active Substance: RIVAROXABAN
     Indication: DEEP VEIN THROMBOSIS
     Route: 048
     Dates: end: 20160125
  2. APIXABAN [Suspect]
     Active Substance: APIXABAN
     Indication: DEEP VEIN THROMBOSIS

REACTIONS (1)
  - Gastrointestinal haemorrhage [None]

NARRATIVE: CASE EVENT DATE: 20160104
